FAERS Safety Report 4985119-9 (Version None)
Quarter: 2006Q1

REPORT INFORMATION
  Report Type: 
  Country: None (occurrence: None)
  Receive Date: 20060309
  Receipt Date: 20050907
  Transmission Date: 20060701
  Serious: Yes (Other)
  Sender: FDA-Public Use
  Company Number: 417321

PATIENT
  Sex: Male
  Weight: 3.6 kg

DRUGS (2)
  1. ACCUTANE [Suspect]
     Indication: DRUG USE FOR UNKNOWN INDICATION
     Dates: start: 19860615, end: 19860615
  2. CORIC FORTE (LISINOPRIL) [Concomitant]

REACTIONS (3)
  - CANDIDIASIS [None]
  - SHOULDER DYSTOCIA [None]
  - TORTICOLLIS [None]
